FAERS Safety Report 12840682 (Version 3)
Quarter: 2017Q4

REPORT INFORMATION
  Report Type: Report from Study
  Country: CA (occurrence: CA)
  Receive Date: 20161012
  Receipt Date: 20171121
  Transmission Date: 20180320
  Serious: Yes (Hospitalization)
  Sender: FDA-Public Use
  Company Number: CA-HLSUS-2016-CA-000524

PATIENT
  Sex: Female

DRUGS (1)
  1. CLOZARIL [Suspect]
     Active Substance: CLOZAPINE
     Route: 048
     Dates: start: 20000607

REACTIONS (3)
  - Pulmonary embolism [Unknown]
  - Lung neoplasm malignant [Not Recovered/Not Resolved]
  - Metastases to bone [Not Recovered/Not Resolved]
